FAERS Safety Report 23836664 (Version 1)
Quarter: 2024Q2

REPORT INFORMATION
  Report Type: Spontaneous
  Country: DE (occurrence: DE)
  Receive Date: 20240509
  Receipt Date: 20240509
  Transmission Date: 20240715
  Serious: Yes (Other)
  Sender: FDA-Public Use
  Company Number: DE-EMBRYOTOX-202303282

PATIENT
  Age: 1 Day
  Sex: Female
  Weight: 2.42 kg

DRUGS (8)
  1. METOPROLOL [Suspect]
     Active Substance: METOPROLOL
     Indication: Tachycardia
     Dosage: 50 [MG/D]
     Route: 064
  2. ASPIRIN [Concomitant]
     Active Substance: ASPIRIN
     Indication: Assisted fertilisation
     Dosage: 100 [MG/D]
     Route: 064
  3. LEVEMIR [Concomitant]
     Active Substance: INSULIN DETEMIR
     Indication: Gestational diabetes
     Dosage: 20 [I.E./D ]/ 2-20 IU/D
     Route: 064
     Dates: start: 20230830, end: 20231025
  4. BOOSTRIX [Concomitant]
     Active Substance: TETANUS TOXOID, REDUCED DIPHTHERIA TOXOID AND ACELLULAR PERTUSSIS VACCINE, ADSORBED ANTIGENS
     Indication: Immunisation
     Route: 064
     Dates: start: 20230831, end: 20230831
  5. PROGESTERONE [Concomitant]
     Active Substance: PROGESTERONE
     Indication: Assisted fertilisation
     Dosage: 250 [MG/D]
     Route: 064
  6. MISOPROSTOL [Concomitant]
     Active Substance: MISOPROSTOL
     Indication: Labour induction
     Dosage: 50 [?G/D]
     Route: 064
     Dates: start: 20231025, end: 20231025
  7. METHYLDOPA [Suspect]
     Active Substance: METHYLDOPA
     Indication: Hypertension
     Dosage: 250 [MG/D]
     Route: 064
     Dates: start: 20230129, end: 20231025
  8. BISOPROLOL [Concomitant]
     Active Substance: BISOPROLOL\BISOPROLOL FUMARATE
     Indication: Hypertension
     Dosage: 2.5 [MG/D]
     Route: 064

REACTIONS (2)
  - Small for dates baby [Recovered/Resolved]
  - Foetal exposure during pregnancy [Unknown]

NARRATIVE: CASE EVENT DATE: 20231001
